FAERS Safety Report 8062202-5 (Version None)
Quarter: 2012Q1

REPORT INFORMATION
  Report Type: 
  Country: None (occurrence: None)
  Receive Date: 20120123
  Receipt Date: 20120116
  Transmission Date: 20120608
  Serious: Yes (Hospitalization)
  Sender: FDA-Public Use
  Company Number: DE-BRISTOL-MYERS SQUIBB COMPANY-16255747

PATIENT
  Age: 48 Year
  Sex: Female

DRUGS (1)
  1. YERVOY [Suspect]
     Dosage: NO .OF INF:3

REACTIONS (2)
  - NEOPLASM MALIGNANT [None]
  - HEPATOMEGALY [None]
